FAERS Safety Report 8933065 (Version 1)
Quarter: 2012Q4

REPORT INFORMATION
  Report Type: 
  Country: MX (occurrence: MX)
  Receive Date: 20121129
  Receipt Date: 20121129
  Transmission Date: 20130627
  Serious: Yes (Death, Hospitalization)
  Sender: FDA-Public Use
  Company Number: PHHY2012MX108812

PATIENT
  Age: 69 Year
  Sex: Female

DRUGS (3)
  1. EXFORGE HCT [Suspect]
     Indication: HYPERTENSION
     Dosage: 1 DF(160 mg vals, 5 mg amlo and 12.5 mg HCTZ), daily
     Route: 048
     Dates: start: 2008
  2. ALCALCOR [Concomitant]
     Indication: ARTHRITIS
     Dates: start: 1992
  3. AMARYL [Concomitant]
     Indication: DIABETES MELLITUS
     Dosage: 2 DF, daily

REACTIONS (7)
  - Cardiac arrest [Fatal]
  - Chest pain [Fatal]
  - Respiration abnormal [Fatal]
  - Renal impairment [Fatal]
  - Gastrointestinal hypomotility [Fatal]
  - Hypophagia [Fatal]
  - Vomiting [Fatal]
